FAERS Safety Report 11028051 (Version 2)
Quarter: 2015Q2

REPORT INFORMATION
  Report Type: Spontaneous
  Country: NL (occurrence: NL)
  Receive Date: 20150414
  Receipt Date: 20150504
  Transmission Date: 20150821
  Serious: Yes (Death, Life-Threatening, Hospitalization, Other)
  Sender: FDA-Public Use
  Company Number: NL-GLAXOSMITHKLINE-NL2015GSK049119

PATIENT
  Age: 46 Year
  Sex: Male
  Weight: 60 kg

DRUGS (2)
  1. LAMOTRIGINE. [Suspect]
     Active Substance: LAMOTRIGINE
     Indication: EPILEPSY
     Dosage: 50 MG, BID
     Dates: start: 20150219, end: 20150331
  2. OMEPRAZOLE. [Concomitant]
     Active Substance: OMEPRAZOLE
     Indication: PRODUCT USED FOR UNKNOWN INDICATION
     Dosage: 40 MG, QD

REACTIONS (6)
  - Hepatic failure [Recovering/Resolving]
  - Leukocytosis [Recovering/Resolving]
  - Vomiting [Recovering/Resolving]
  - Pyrexia [Fatal]
  - Hepatitis alcoholic [Fatal]
  - Chills [Recovering/Resolving]

NARRATIVE: CASE EVENT DATE: 20150314
